FAERS Safety Report 16741855 (Version 2)
Quarter: 2019Q4

REPORT INFORMATION
  Report Type: Report from Study
  Country: US (occurrence: US)
  Receive Date: 20190826
  Receipt Date: 20191008
  Transmission Date: 20200122
  Serious: Yes (Life-Threatening, Congenital Anomaly, Other)
  Sender: FDA-Public Use
  Company Number: US-OTSUKA-2018_038563

PATIENT
  Age: 35 Year
  Sex: Male

DRUGS (11)
  1. TOLVAPTAN [Suspect]
     Active Substance: TOLVAPTAN
     Indication: CONGENITAL CYSTIC KIDNEY DISEASE
     Dosage: 90 MG, (IN THE MORNING)
     Route: 048
     Dates: start: 20180803, end: 20190821
  2. ERYTHROPOETIN [Concomitant]
     Active Substance: ERYTHROPOIETIN
     Indication: PRODUCT USED FOR UNKNOWN INDICATION
     Dosage: UNK
     Route: 065
  3. LOSARTAN. [Concomitant]
     Active Substance: LOSARTAN
     Indication: PRODUCT USED FOR UNKNOWN INDICATION
     Dosage: UNK
     Route: 065
  4. DICLOFENAC [Concomitant]
     Active Substance: DICLOFENAC
     Indication: PRODUCT USED FOR UNKNOWN INDICATION
     Dosage: APPLY 2 G  BID, ON PAINFUL AREA
     Route: 065
  5. BENICAR [Concomitant]
     Active Substance: OLMESARTAN MEDOXOMIL
     Indication: PRODUCT USED FOR UNKNOWN INDICATION
     Dosage: 20 MG, QD
     Route: 065
  6. CARVEDILOL. [Concomitant]
     Active Substance: CARVEDILOL
     Indication: PRODUCT USED FOR UNKNOWN INDICATION
     Dosage: 25 MG, BID
     Route: 048
  7. SODIUM BICARBONATE. [Concomitant]
     Active Substance: SODIUM BICARBONATE
     Indication: PRODUCT USED FOR UNKNOWN INDICATION
     Dosage: 650 MG, QD
     Route: 048
  8. POLYSORBATE 20. [Concomitant]
     Active Substance: POLYSORBATE 20
     Indication: PRODUCT USED FOR UNKNOWN INDICATION
     Dosage: 100 ?G/0.5 ML ONCE EVERY OTHER WEEK FOR 8 DOSES
     Route: 058
     Dates: start: 20190507, end: 20190515
  9. SILDENAFIL. [Concomitant]
     Active Substance: SILDENAFIL
     Indication: PRODUCT USED FOR UNKNOWN INDICATION
     Dosage: 100 MG, QD
     Route: 048
  10. TOLVAPTAN [Suspect]
     Active Substance: TOLVAPTAN
     Dosage: 30 MG, (IN THE EVENING)
     Route: 048
     Dates: start: 20180803, end: 20190821
  11. OLMESARTAN [Concomitant]
     Active Substance: OLMESARTAN
     Indication: PRODUCT USED FOR UNKNOWN INDICATION
     Dosage: 20 MG, QD
     Route: 048

REACTIONS (14)
  - Liver injury [Unknown]
  - Varicose vein [Unknown]
  - Blood creatinine increased [Unknown]
  - Portal vein occlusion [Unknown]
  - Pancreatic cyst [Unknown]
  - Nephrogenic anaemia [Unknown]
  - Hepatic enzyme increased [Not Recovered/Not Resolved]
  - Hepatic steatosis [Unknown]
  - Polyuria [Not Recovered/Not Resolved]
  - Pancytopenia [Unknown]
  - Product dose omission [Unknown]
  - Congenital hepatic fibrosis [Unknown]
  - Splenomegaly [Unknown]
  - Thirst [Not Recovered/Not Resolved]

NARRATIVE: CASE EVENT DATE: 201906
